FAERS Safety Report 23573235 (Version 1)
Quarter: 2024Q1

REPORT INFORMATION
  Report Type: Spontaneous
  Country: DE (occurrence: DE)
  Receive Date: 20240228
  Receipt Date: 20240228
  Transmission Date: 20240409
  Serious: Yes (Hospitalization, Other)
  Sender: FDA-Public Use
  Company Number: DE-009507513-2402DEU003462

PATIENT
  Age: 82 Year
  Sex: Female
  Weight: 62 kg

DRUGS (5)
  1. PEMETREXED [Suspect]
     Active Substance: PEMETREXED
     Indication: Non-small cell lung cancer
     Dosage: 790 MILLIGRAM, FIRST LINE
     Route: 065
     Dates: start: 20231113
  2. PEMETREXED [Suspect]
     Active Substance: PEMETREXED
     Dosage: 765 MILLIGRAM, FIRST LINE
     Route: 065
     Dates: start: 20231228
  3. PEMBROLIZUMAB [Suspect]
     Active Substance: PEMBROLIZUMAB
     Indication: Non-small cell lung cancer
     Dosage: 200 MILLIGRAM, FIRST LINE
     Route: 065
     Dates: start: 20231113, end: 20231228
  4. CARBOPLATIN [Suspect]
     Active Substance: CARBOPLATIN
     Indication: Non-small cell lung cancer
     Dosage: 351 MILLIGRAM,  FIRST LINE
     Route: 065
     Dates: start: 20231113
  5. CARBOPLATIN [Suspect]
     Active Substance: CARBOPLATIN
     Dosage: 326.1 MILLIGRAM
     Route: 065
     Dates: start: 20231228

REACTIONS (1)
  - Immune-mediated enterocolitis [Recovered/Resolved]

NARRATIVE: CASE EVENT DATE: 20231231
